FAERS Safety Report 18921455 (Version 3)
Quarter: 2021Q1

REPORT INFORMATION
  Report Type: Spontaneous
  Country: US (occurrence: US)
  Receive Date: 20210222
  Receipt Date: 20210302
  Transmission Date: 20210420
  Serious: Yes (Other)
  Sender: FDA-Public Use
  Company Number: US-GLAXOSMITHKLINE-US2021AMR041997

PATIENT
  Age: 70 Year
  Sex: Female

DRUGS (1)
  1. NUCALA [Suspect]
     Active Substance: MEPOLIZUMAB
     Indication: ASTHMA
     Dosage: 100MG ,Z,(PER 28 DAY)
     Dates: start: 20170419

REACTIONS (9)
  - Eosinophil count increased [Unknown]
  - Pruritus [Unknown]
  - Loss of consciousness [Unknown]
  - Upper respiratory tract infection [Unknown]
  - Dizziness [Unknown]
  - Fatigue [Unknown]
  - Syncope [Unknown]
  - Rash [Unknown]
  - Product dose omission issue [Unknown]

NARRATIVE: CASE EVENT DATE: 202101
